FAERS Safety Report 8110882-8 (Version None)
Quarter: 2012Q1

REPORT INFORMATION
  Report Type: 
  Country: None (occurrence: None)
  Receive Date: 20120203
  Receipt Date: 20120130
  Transmission Date: 20120608
  Serious: Yes (Other)
  Sender: FDA-Public Use
  Company Number: CN-JNJFOC-20120200048

PATIENT
  Age: 30 Year
  Sex: Female

DRUGS (2)
  1. MICONAZOLE NITRATE [Suspect]
     Indication: VULVOVAGINAL PRURITUS
     Route: 067
     Dates: start: 20120120, end: 20120127
  2. MICONAZOLE NITRATE [Suspect]
     Route: 067

REACTIONS (1)
  - ANOGENITAL WARTS [None]
